FAERS Safety Report 13717923 (Version 3)
Quarter: 2017Q4

REPORT INFORMATION
  Report Type: Spontaneous
  Country: FR (occurrence: FR)
  Receive Date: 20170705
  Receipt Date: 20171010
  Transmission Date: 20180320
  Serious: Yes (Life-Threatening)
  Sender: FDA-Public Use
  Company Number: FR-BEH-2017081768

PATIENT
  Age: 53 Year
  Sex: Male

DRUGS (4)
  1. PRIVIGEN [Suspect]
     Active Substance: HUMAN IMMUNOGLOBULIN G
     Dosage: 170 G, 2 G/KG
     Route: 042
     Dates: start: 20170516, end: 20170517
  2. POLARAMINE [Concomitant]
     Active Substance: DEXCHLORPHENIRAMINE MALEATE
     Indication: PREMEDICATION
     Dosage: UNK
     Route: 065
     Dates: start: 20170616
  3. CLAIRYG [Suspect]
     Active Substance: HUMAN IMMUNOGLOBULIN G
     Indication: DERMATOMYOSITIS
     Dosage: FLOW RATE 60 ML/HR
     Route: 042
     Dates: start: 20170616, end: 20170617
  4. PRIVIGEN [Suspect]
     Active Substance: HUMAN IMMUNOGLOBULIN G
     Indication: DERMATOMYOSITIS
     Dosage: 85 G, 1 G/KG
     Route: 042
     Dates: start: 20170615, end: 20170616

REACTIONS (6)
  - Generalised erythema [Recovered/Resolved]
  - Muscular weakness [Unknown]
  - Depression [Unknown]
  - Myopathy [Unknown]
  - Chest discomfort [Recovered/Resolved]
  - Weight decreased [Unknown]

NARRATIVE: CASE EVENT DATE: 20170615
